FAERS Safety Report 6260873-7 (Version None)
Quarter: 2009Q3

REPORT INFORMATION
  Report Type: 
  Country: None (occurrence: None)
  Receive Date: 20090707
  Receipt Date: 20090629
  Transmission Date: 20100115
  Serious: Yes (Other)
  Sender: FDA-Public Use
  Company Number: GXKR2009ES06781

PATIENT
  Age: 24 Year
  Sex: Female

DRUGS (1)
  1. MEDROXYPROGESTERONE [Suspect]
     Indication: POLYCYSTIC OVARIES
     Dosage: 60 MG, DAILY,

REACTIONS (5)
  - ALANINE AMINOTRANSFERASE INCREASED [None]
  - ASPARTATE AMINOTRANSFERASE INCREASED [None]
  - CHOLELITHIASIS [None]
  - CYTOLYTIC HEPATITIS [None]
  - GAMMA-GLUTAMYLTRANSFERASE ABNORMAL [None]
